FAERS Safety Report 6827868-3 (Version None)
Quarter: 2010Q3

REPORT INFORMATION
  Report Type: 
  Country: None (occurrence: None)
  Receive Date: 20100709
  Receipt Date: 20100623
  Transmission Date: 20110219
  Serious: Yes (Hospitalization)
  Sender: FDA-Public Use
  Company Number: A0832059A

PATIENT
  Age: 69 Year
  Sex: Male
  Weight: 81.8 kg

DRUGS (7)
  1. AVANDIA [Suspect]
     Route: 048
     Dates: start: 20011201, end: 20070901
  2. BENICAR [Concomitant]
  3. FIORICET [Concomitant]
  4. CLARITIN [Concomitant]
  5. FLONASE [Concomitant]
  6. MECLIZINE [Concomitant]
  7. ZESTORETIC [Concomitant]

REACTIONS (3)
  - CARDIAC FAILURE CONGESTIVE [None]
  - FRACTURE [None]
  - MYOCARDIAL INFARCTION [None]
